FAERS Safety Report 24557310 (Version 2)
Quarter: 2024Q4

REPORT INFORMATION
  Report Type: Spontaneous
  Country: US (occurrence: US)
  Receive Date: 20241028
  Receipt Date: 20241127
  Transmission Date: 20250114
  Serious: Yes (Other)
  Sender: BAYER HEALTHCARE PHARMACEUTICALS INC.
  Company Number: US-BAYER-2024A149393

PATIENT
  Age: 47 Year
  Sex: Male

DRUGS (2)
  1. KOVALTRY [Suspect]
     Active Substance: ANTIHEMOPHILIC FACTOR, HUMAN RECOMBINANT
     Dosage: KOVALTRY 3036 UNITS/INFUSE 6072 UNITS ON SUNDAY,MONDAY AND WEDNESDAY
     Route: 042
     Dates: start: 20241013
  2. KOVALTRY [Suspect]
     Active Substance: ANTIHEMOPHILIC FACTOR, HUMAN RECOMBINANT
     Dosage: KOVALTRY/INFUSE 6000 IU, QD X 3 DAYS
     Route: 042

REACTIONS (3)
  - Haemorrhage [Recovered/Resolved]
  - Fall [None]
  - Ligament sprain [None]

NARRATIVE: CASE EVENT DATE: 20241013
